FAERS Safety Report 5916025-0 (Version None)
Quarter: 2008Q4

REPORT INFORMATION
  Report Type: 
  Country: None (occurrence: None)
  Receive Date: 20081009
  Receipt Date: 20081009
  Transmission Date: 20090506
  Serious: Yes (Hospitalization)
  Sender: FDA-Public Use
  Company Number: None

PATIENT
  Age: 64 Year
  Sex: Female

DRUGS (1)
  1. LAMICTAL [Suspect]
     Dosage: 12.5 MG / 5X DAY / PO PRIOR TO ADMISSION
     Route: 048

REACTIONS (3)
  - ATAXIA [None]
  - DIZZINESS [None]
  - RENAL FAILURE [None]
